FAERS Safety Report 7196446-1 (Version None)
Quarter: 2010Q4

REPORT INFORMATION
  Report Type: 
  Country: None (occurrence: None)
  Receive Date: 20101223
  Receipt Date: 20101025
  Transmission Date: 20110411
  Serious: No
  Sender: FDA-Public Use
  Company Number: US-AMGEN-USASP2010002682

PATIENT

DRUGS (14)
  1. ENBREL [Suspect]
     Indication: PRODUCT USED FOR UNKNOWN INDICATION
     Dosage: 50 MG, QWK
  2. JANUVIA [Concomitant]
     Dosage: 50 MG, UNK
  3. ZOCORT [Concomitant]
     Dosage: 40 MG, UNK
  4. CELEBREX [Concomitant]
     Dosage: 200 MG, UNK
  5. PAXIL CR [Concomitant]
     Dosage: 12.5 MG, UNK
  6. METHOTREXATE [Concomitant]
     Dosage: 2.5 MG, UNK
  7. SYNTHROID [Concomitant]
     Dosage: 88 UNK, UNK
  8. ATENOLOL [Concomitant]
     Dosage: 25 MG, UNK
  9. ENALAPRIL + HIDROCLOROTIAZIDA [Concomitant]
  10. FOLIC ACID [Concomitant]
     Dosage: 1 MG, UNK
  11. ADVAIR HFA [Concomitant]
     Dosage: UNK
  12. SPIRIVA [Concomitant]
  13. VITAMIN A [Concomitant]
     Dosage: 1000 UNIT, UNK
  14. VITAMIN B12.Z NIPPON ZOKI [Concomitant]
     Dosage: 1000 UNK, UNK

REACTIONS (2)
  - FATIGUE [None]
  - SOMNOLENCE [None]
